FAERS Safety Report 5393441-X (Version None)
Quarter: 2007Q3

REPORT INFORMATION
  Report Type: 
  Country: None (occurrence: None)
  Receive Date: 20070723
  Receipt Date: 20060620
  Transmission Date: 20080115
  Serious: No
  Sender: FDA-Public Use
  Company Number: A0579816A

PATIENT

DRUGS (3)
  1. AVANDIA [Suspect]
     Indication: DRUG USE FOR UNKNOWN INDICATION
     Dosage: 4MG UNKNOWN
     Route: 048
  2. COUMADIN [Suspect]
     Indication: DRUG USE FOR UNKNOWN INDICATION
     Dosage: 6MG PER DAY
     Route: 065
  3. CARDURA [Suspect]

REACTIONS (1)
  - MEDICATION ERROR [None]
